FAERS Safety Report 8610514-6 (Version None)
Quarter: 2012Q3

REPORT INFORMATION
  Report Type: 
  Country: None (occurrence: None)
  Receive Date: 20120822
  Receipt Date: 20120816
  Transmission Date: 20120928
  Serious: Yes (Death)
  Sender: FDA-Public Use
  Company Number: US-CELGENEUS-163-21880-12081946

PATIENT
  Sex: Male

DRUGS (11)
  1. REVLIMID [Suspect]
     Dosage: 5 MILLIGRAM
     Route: 048
     Dates: start: 20120201
  2. REVLIMID [Suspect]
     Route: 048
     Dates: start: 20120701
  3. DEXAMETHASONE [Concomitant]
     Route: 065
     Dates: start: 20120701
  4. RANITIDINE [Concomitant]
     Route: 065
  5. DEXAMETHASONE [Concomitant]
     Route: 065
     Dates: start: 20111201
  6. METOPROLOL TARTRATE [Concomitant]
     Route: 065
  7. ONDANSETRON [Concomitant]
     Route: 065
  8. BIAXIN [Concomitant]
     Route: 065
  9. REVLIMID [Suspect]
     Indication: MULTIPLE MYELOMA
     Dosage: 10 MILLIGRAM
     Route: 048
     Dates: start: 20111201, end: 20120501
  10. VELCADE [Concomitant]
     Route: 065
     Dates: start: 20120501
  11. LORAZEPAM [Concomitant]
     Route: 065

REACTIONS (4)
  - HYPOPHAGIA [None]
  - GAIT DISTURBANCE [None]
  - FATIGUE [None]
  - DEATH [None]
